FAERS Safety Report 4481428-0 (Version None)
Quarter: 2004Q3

REPORT INFORMATION
  Report Type: 
  Country: None (occurrence: None)
  Receive Date: 20040923
  Receipt Date: 20040722
  Transmission Date: 20050211
  Serious: No
  Sender: FDA-Public Use
  Company Number: USA040773405

PATIENT
  Age: 68 Year
  Sex: Female

DRUGS (7)
  1. FORTEO [Suspect]
     Dates: start: 20040601
  2. SYNTHROID [Concomitant]
  3. MOTRIN [Concomitant]
  4. PROPOXYPHENE [Concomitant]
  5. ZANTAC [Concomitant]
  6. LIPITOR [Concomitant]
  7. NEURONTIN [Concomitant]

REACTIONS (1)
  - CUSHINGOID [None]
